FAERS Safety Report 10510945 (Version 1)
Quarter: 2014Q4

REPORT INFORMATION
  Report Type: Report from Study
  Country: US (occurrence: US)
  Receive Date: 20141010
  Receipt Date: 20141010
  Transmission Date: 20150528
  Serious: Yes (Death, Other)
  Sender: FDA-Public Use
  Company Number: US-AMGEN-USASL2014078027

PATIENT
  Age: 74 Year
  Sex: Male

DRUGS (40)
  1. CARBOPLATIN. [Concomitant]
     Active Substance: CARBOPLATIN
     Dosage: UNK
     Dates: start: 20110822
  2. DEXAMETHASONE SODIUM PHOSPHATE. [Concomitant]
     Active Substance: DEXAMETHASONE SODIUM PHOSPHATE
     Dosage: UNK
     Dates: start: 20110822
  3. FISH OIL [Concomitant]
     Active Substance: FISH OIL
     Dosage: UNK UNK, 1 IN 1 D
     Route: 048
  4. RAMIPRIL. [Concomitant]
     Active Substance: RAMIPRIL
     Dosage: 5 MG, 1 IN 1 D
     Route: 048
  5. ASPIRIN                            /00002701/ [Concomitant]
     Active Substance: ASPIRIN
     Dosage: 81 MG, 1 IN 1 D
     Route: 048
  6. XALATAN [Concomitant]
     Active Substance: LATANOPROST
     Dosage: 0.005 %, UNK
  7. AMBIEN [Concomitant]
     Active Substance: ZOLPIDEM TARTRATE
     Dosage: 10 MG, UNK
     Route: 048
     Dates: start: 20120120, end: 20120210
  8. DIPHENHYDRAMINE HYDROCHLORIDE. [Concomitant]
     Active Substance: DIPHENHYDRAMINE HYDROCHLORIDE
     Dosage: 25 IU, 1 IN 1 D
     Route: 042
     Dates: start: 20111107, end: 20120103
  9. FERRLECIT                          /00023541/ [Concomitant]
     Dosage: 125 MG, UNK
     Route: 042
     Dates: start: 20111107, end: 20120103
  10. NEULASTA [Suspect]
     Active Substance: PEGFILGRASTIM
     Indication: THROMBOCYTOPENIA
  11. ALOXI [Concomitant]
     Active Substance: PALONOSETRON HYDROCHLORIDE
     Dosage: UNK
     Dates: start: 20110822
  12. ZOFRAN                             /00955301/ [Concomitant]
     Active Substance: ONDANSETRON HYDROCHLORIDE
     Dosage: UNK
     Dates: start: 20120120
  13. ZOCOR [Concomitant]
     Active Substance: SIMVASTATIN
     Dosage: 40 MG, 1 IN 1 D
     Route: 048
  14. FAMOTIDINE. [Concomitant]
     Active Substance: FAMOTIDINE
     Dosage: 20 MG, 1 IN 1 D
     Route: 042
  15. INVANZ [Concomitant]
     Active Substance: ERTAPENEM SODIUM
     Dosage: 1000 MG, 1 IN 1 D
     Route: 042
     Dates: start: 20110829, end: 20110902
  16. PROMETHAZINE [Concomitant]
     Active Substance: PROMETHAZINE\PROMETHAZINE HYDROCHLORIDE
     Dosage: 12.5 - 50 MG, FOR 1 DAY (1 IN 1 D)
     Route: 042
     Dates: start: 20120120, end: 20120120
  17. VANCOMYCIN [Concomitant]
     Active Substance: VANCOMYCIN
     Dosage: 1000-2000 MG OF (50 MG/ML) 1 IN 1 D
     Route: 042
     Dates: start: 20110829, end: 20110902
  18. TARCEVA [Suspect]
     Active Substance: ERLOTINIB HYDROCHLORIDE
     Indication: LUNG NEOPLASM MALIGNANT
     Dosage: UNK
     Route: 048
     Dates: start: 20120619
  19. SUCRALFATE. [Concomitant]
     Active Substance: SUCRALFATE
     Dosage: UNK
     Dates: start: 20120130
  20. ACETAMINOPHEN. [Concomitant]
     Active Substance: ACETAMINOPHEN
     Dosage: 1000 MG, 1 IN 1 D
     Route: 048
     Dates: start: 20111107, end: 20120103
  21. EMEND [Concomitant]
     Active Substance: APREPITANT
     Dosage: 100 MG, 1 IN 1 D
     Route: 042
     Dates: start: 20110822, end: 20111219
  22. MAGNESIUM OXIDE. [Concomitant]
     Active Substance: MAGNESIUM OXIDE
     Dosage: 400 MG, 2 IN 1 D (800 MG)
     Dates: start: 20120619
  23. TUSSIONEX PENNKINETIC [Concomitant]
     Active Substance: CHLORPHENIRAMINE\HYDROCODONE
     Dosage: UNK
     Dates: start: 20120402
  24. LEVAQUIN [Concomitant]
     Active Substance: LEVOFLOXACIN
     Dosage: 500 MG, 1 IN 1 D
     Route: 048
     Dates: start: 20110902, end: 20110907
  25. NEULASTA [Suspect]
     Active Substance: PEGFILGRASTIM
     Indication: ANAEMIA
     Dosage: UNK
     Route: 058
     Dates: start: 20110823, end: 20111220
  26. KYTRIL [Suspect]
     Active Substance: GRANISETRON HYDROCHLORIDE
     Indication: PRODUCT USED FOR UNKNOWN INDICATION
     Dosage: UNK
     Route: 042
     Dates: start: 20120120, end: 20120120
  27. XGEVA [Concomitant]
     Active Substance: DENOSUMAB
     Dosage: 120 MG, 1 IN 1 D
     Route: 058
     Dates: start: 20120619, end: 20120619
  28. DIFLUCAN [Concomitant]
     Active Substance: FLUCONAZOLE
     Dosage: UNK
     Dates: start: 20110919
  29. DIFLUCAN [Concomitant]
     Active Substance: FLUCONAZOLE
     Dosage: UNK
     Dates: start: 20120706
  30. LIDOCAINE HYDROCHLORIDE. [Concomitant]
     Active Substance: LIDOCAINE HYDROCHLORIDE
     Dosage: UNK
     Dates: start: 20120625
  31. LORTAB [Concomitant]
     Active Substance: ACETAMINOPHEN\HYDROCODONE BITARTRATE
     Dosage: UNK
     Dates: start: 20111019
  32. RESTORIL                           /00393701/ [Concomitant]
     Dosage: 30 MG, UNK
     Route: 048
     Dates: start: 20120210, end: 20120510
  33. VALTREX [Concomitant]
     Active Substance: VALACYCLOVIR HYDROCHLORIDE
     Dosage: 500 MG, 2 IN 1 D
     Route: 048
     Dates: start: 20111223, end: 20111228
  34. COMPAZINE                          /00013304/ [Concomitant]
     Dosage: UNK
     Dates: start: 20110819
  35. DEXAMETHASONE. [Concomitant]
     Active Substance: DEXAMETHASONE
     Dosage: UNK
     Dates: start: 20110819
  36. PRED FORTE [Concomitant]
     Active Substance: PREDNISOLONE ACETATE
     Dosage: UNK
     Dates: start: 20111111
  37. METOPROLOL SUCCINATE. [Concomitant]
     Active Substance: METOPROLOL SUCCINATE
     Dosage: 25 MG, 1 IN 1 D
     Route: 048
  38. PLETAL [Concomitant]
     Active Substance: CILOSTAZOL
     Dosage: 100 MG, 2 IN 1 D
     Route: 048
  39. KEFLEX [Concomitant]
     Active Substance: CEPHALEXIN
     Dosage: 500 MG, 4 IN 1 D FOR 7 DAYS
     Route: 048
     Dates: start: 20111111, end: 20111118
  40. TAXOTERE [Concomitant]
     Active Substance: DOCETAXEL
     Dosage: 140 MG, 1 IN 1 D
     Route: 042
     Dates: start: 20110822, end: 20111219

REACTIONS (5)
  - Metastases to spine [Unknown]
  - Death [Fatal]
  - Oral candidiasis [Unknown]
  - Neuropathy peripheral [Unknown]
  - Metastases to bone marrow [Unknown]

NARRATIVE: CASE EVENT DATE: 20111031
